FAERS Safety Report 4916609-2 (Version None)
Quarter: 2006Q1

REPORT INFORMATION
  Report Type: 
  Country: None (occurrence: None)
  Receive Date: 20060220
  Receipt Date: 20060209
  Transmission Date: 20060701
  Serious: Yes (Death)
  Sender: FDA-Public Use
  Company Number: GB-GLAXOSMITHKLINE-B0410365A

PATIENT
  Age: 11 Year
  Sex: Female

DRUGS (1)
  1. SEREVENT [Suspect]
     Route: 065

REACTIONS (4)
  - ASTHMA [None]
  - DYSPNOEA [None]
  - FATIGUE [None]
  - MALAISE [None]
